FAERS Safety Report 4284007-3 (Version None)
Quarter: 2004Q1

REPORT INFORMATION
  Report Type: 
  Country: None (occurrence: None)
  Receive Date: 20040130
  Receipt Date: 20040113
  Transmission Date: 20041129
  Serious: Yes (Hospitalization, Other)
  Sender: FDA-Public Use
  Company Number: US_040199936

PATIENT
  Age: 79 Year
  Sex: Male
  Weight: 114 kg

DRUGS (2)
  1. HUMULIN N [Suspect]
     Indication: DIABETES MELLITUS
     Dosage: 20 U/2 DAY
     Dates: start: 19900101
  2. HUMULIN R [Suspect]
     Indication: DIABETES MELLITUS
     Dosage: 5 U/2 DAY
     Dates: start: 19850101

REACTIONS (7)
  - BLOOD GLUCOSE DECREASED [None]
  - EATING DISORDER [None]
  - HAEMOGLOBIN DECREASED [None]
  - HAEMORRHAGE [None]
  - MEDICATION ERROR [None]
  - PROSTATE CANCER [None]
  - PROSTATITIS [None]
